FAERS Safety Report 20067772 (Version 5)
Quarter: 2022Q1

REPORT INFORMATION
  Report Type: Spontaneous
  Country: US (occurrence: US)
  Receive Date: 20211115
  Receipt Date: 20220310
  Transmission Date: 20220424
  Serious: Yes (Other)
  Sender: FDA-Public Use
  Company Number: US-GLAXOSMITHKLINE-US2021AMR232778

PATIENT
  Age: 61 Year
  Sex: Female
  Weight: 63 kg

DRUGS (1)
  1. SOTROVIMAB [Suspect]
     Active Substance: SOTROVIMAB
     Indication: COVID-19
     Dosage: 500 MG, Z, ONCE
     Route: 042
     Dates: start: 20211109

REACTIONS (7)
  - Pulmonary oedema [Recovering/Resolving]
  - Infection [Recovering/Resolving]
  - Atelectasis [Recovering/Resolving]
  - Chest discomfort [Recovering/Resolving]
  - Hypersensitivity [Recovering/Resolving]
  - Dyspnoea [Recovering/Resolving]
  - Granuloma [Unknown]

NARRATIVE: CASE EVENT DATE: 20211101
